FAERS Safety Report 6133847-4 (Version None)
Quarter: 2009Q1

REPORT INFORMATION
  Report Type: 
  Country: None (occurrence: None)
  Receive Date: 20090326
  Receipt Date: 20090311
  Transmission Date: 20090719
  Serious: Yes (Hospitalization)
  Sender: FDA-Public Use
  Company Number: CA-PFIZER INC-2009177387

PATIENT

DRUGS (7)
  1. BLINDED *PLACEBO [Suspect]
     Indication: NON-SMALL CELL LUNG CANCER
     Dosage: 37.5 MG, 1X/DAY
     Route: 048
     Dates: start: 20080626
  2. BLINDED SUNITINIB MALATE [Suspect]
     Indication: NON-SMALL CELL LUNG CANCER
     Dosage: 37.5 MG, 1X/DAY
     Route: 048
     Dates: start: 20080626
  3. *ERLOTINIB [Suspect]
     Indication: NON-SMALL CELL LUNG CANCER
     Dosage: 100 MG, 1X/DAY
     Route: 048
     Dates: start: 20080626
  4. TAMSULOSIN HYDROCHLORIDE [Concomitant]
     Indication: NOCTURIA
     Dosage: 0.4 MG, 1X/DAY
     Route: 048
     Dates: start: 20061101
  5. FUROSEMIDE [Concomitant]
     Indication: PROPHYLAXIS
     Dosage: 20 MG, 1X/DAY
     Route: 048
     Dates: start: 20030101
  6. RAMIPRIL [Concomitant]
     Indication: HYPERTENSION
     Dosage: 2.5 MG, 1X/DAY
     Route: 048
     Dates: start: 20080917
  7. NORVASC [Concomitant]
     Indication: HYPERTENSION
     Dosage: 5 MG, 1X/DAY
     Route: 048
     Dates: start: 20081113

REACTIONS (2)
  - ANAEMIA [None]
  - PNEUMONIA [None]
